FAERS Safety Report 12127913 (Version 2)
Quarter: 2016Q2

REPORT INFORMATION
  Report Type: Spontaneous
  Country: CH (occurrence: AU)
  Receive Date: 20160229
  Receipt Date: 20160421
  Transmission Date: 20160815
  Serious: Yes (Other)
  Sender: FDA-Public Use
  Company Number: CH-LPDUSPRD-20160173

PATIENT
  Age: 19 Year
  Sex: Female

DRUGS (1)
  1. FERINJECT [Suspect]
     Active Substance: FERRIC CARBOXYMALTOSE
     Dosage: 1 G
     Route: 042
     Dates: start: 20151113

REACTIONS (7)
  - Abdominal pain [Unknown]
  - Tachycardia [Unknown]
  - C-reactive protein increased [Unknown]
  - Lymphopenia [Unknown]
  - Syncope [Unknown]
  - Pyrexia [Unknown]
  - Resting tremor [Unknown]

NARRATIVE: CASE EVENT DATE: 20151115
